FAERS Safety Report 6974612-5 (Version None)
Quarter: 2010Q3

REPORT INFORMATION
  Report Type: 
  Country: None (occurrence: None)
  Receive Date: 20100909
  Receipt Date: 20081202
  Transmission Date: 20110219
  Serious: No
  Sender: FDA-Public Use
  Company Number: US-WYE-H07070208

PATIENT
  Sex: Male
  Weight: 88.98 kg

DRUGS (8)
  1. PRISTIQ [Suspect]
     Indication: DEPRESSION
     Dosage: 50 MG AT NIGHT, FREQUENCY UNSPECIFIED
     Route: 048
     Dates: start: 20081001, end: 20080101
  2. PRISTIQ [Suspect]
     Dosage: 100MG AT NIGHT, FREQUENCY UNSPECIFIED
     Route: 048
     Dates: start: 20080101
  3. LORTAB [Concomitant]
  4. AMBIEN [Concomitant]
  5. ANDROGEL [Concomitant]
  6. ATENOLOL [Concomitant]
  7. NEXIUM [Concomitant]
  8. LOVASTATIN [Concomitant]

REACTIONS (2)
  - DRUG INEFFECTIVE [None]
  - MEDICATION RESIDUE [None]
